FAERS Safety Report 8976495 (Version 1)
Quarter: 2012Q4

REPORT INFORMATION
  Report Type: 
  Country: US (occurrence: US)
  Receive Date: 20121220
  Receipt Date: 20121220
  Transmission Date: 20130627
  Serious: No
  Sender: FDA-Public Use
  Company Number: US-ASTRAZENECA-2012SE92259

PATIENT
  Age: 55 Year
  Sex: Female
  Weight: 79.8 kg

DRUGS (1)
  1. CRESTOR [Suspect]
     Indication: BLOOD CHOLESTEROL INCREASED
     Route: 048
     Dates: start: 201209

REACTIONS (2)
  - Chest discomfort [Unknown]
  - Weight decreased [Unknown]
